FAERS Safety Report 7363472-9 (Version None)
Quarter: 2011Q1

REPORT INFORMATION
  Report Type: 
  Country: None (occurrence: None)
  Receive Date: 20110321
  Receipt Date: 20110310
  Transmission Date: 20110831
  Serious: Yes (Hospitalization)
  Sender: FDA-Public Use
  Company Number: BR-RANBAXY-2011R5-43015

PATIENT

DRUGS (1)
  1. CEFUROXIME AXETIL [Suspect]
     Indication: OROPHARYNGEAL PAIN
     Dosage: 1000 MG, BID
     Route: 048
     Dates: start: 20110305, end: 20110307

REACTIONS (2)
  - DRUG INEFFECTIVE [None]
  - OROPHARYNGEAL PAIN [None]
